FAERS Safety Report 7400432-3 (Version None)
Quarter: 2011Q2

REPORT INFORMATION
  Report Type: 
  Country: None (occurrence: None)
  Receive Date: 20110405
  Receipt Date: 20110405
  Transmission Date: 20111010
  Serious: Yes (Other)
  Sender: FDA-Public Use
  Company Number: None

PATIENT
  Sex: Female
  Weight: 58.9676 kg

DRUGS (1)
  1. LORATADINE [Suspect]
     Indication: SEASONAL ALLERGY
     Dosage: 10 MG QD PO
     Route: 048
     Dates: start: 20110330, end: 20110401

REACTIONS (12)
  - ASTHENIA [None]
  - DIZZINESS [None]
  - HYPERHIDROSIS [None]
  - POLLAKIURIA [None]
  - DIARRHOEA [None]
  - FATIGUE [None]
  - ANXIETY [None]
  - DRY MOUTH [None]
  - DYSSTASIA [None]
  - ABDOMINAL PAIN UPPER [None]
  - RETCHING [None]
  - BLOOD PRESSURE DECREASED [None]
